FAERS Safety Report 22030924 (Version 1)
Quarter: 2023Q1

REPORT INFORMATION
  Report Type: Spontaneous
  Country: US (occurrence: US)
  Receive Date: 20230223
  Receipt Date: 20230223
  Transmission Date: 20230417
  Serious: Yes (Other)
  Sender: FDA-Public Use
  Company Number: US-BRISTOL-MYERS SQUIBB COMPANY-2023-027285

PATIENT
  Age: 5 Decade
  Sex: Male

DRUGS (3)
  1. OPDIVO [Suspect]
     Active Substance: NIVOLUMAB
     Indication: Malignant melanoma
     Dosage: DOSE: UNAV; FREQ: UNAV?A TOTAL OF 2 CYCLES
  2. OPDIVO [Suspect]
     Active Substance: NIVOLUMAB
     Dosage: 1 CYCLE
  3. YERVOY [Suspect]
     Active Substance: IPILIMUMAB
     Indication: Malignant melanoma
     Dosage: A TOTAL OF 2 CYCLES

REACTIONS (1)
  - Colitis [Recovered/Resolved]
